FAERS Safety Report 17009392 (Version 1)
Quarter: 2019Q4

REPORT INFORMATION
  Report Type: Report from Study
  Country: AT (occurrence: AT)
  Receive Date: 20191108
  Receipt Date: 20191108
  Transmission Date: 20200122
  Serious: Yes (Life-Threatening)
  Sender: FDA-Public Use
  Company Number: AT-MYLANLABS-2019M1106399

PATIENT
  Age: 61 Year
  Sex: Female

DRUGS (2)
  1. GANETESPIB [Suspect]
     Active Substance: GANETESPIB
     Indication: OVARIAN EPITHELIAL CANCER
     Dosage: ADMINISTERED ON DAYS..
     Route: 042
  2. PACLITAXEL. [Suspect]
     Active Substance: PACLITAXEL
     Indication: OVARIAN EPITHELIAL CANCER
     Dosage: ADMINISTERED ON DAYS..
     Route: 042

REACTIONS (3)
  - Atrial fibrillation [Recovered/Resolved with Sequelae]
  - Cardiac failure acute [Recovered/Resolved with Sequelae]
  - Left ventricular dysfunction [Recovered/Resolved with Sequelae]
